FAERS Safety Report 12849872 (Version 2)
Quarter: 2016Q4

REPORT INFORMATION
  Report Type: Spontaneous
  Country: DE (occurrence: DE)
  Receive Date: 20161014
  Receipt Date: 20161229
  Transmission Date: 20170207
  Serious: Yes (Hospitalization, Other)
  Sender: FDA-Public Use
  Company Number: DE-TEVA-700086GER

PATIENT
  Age: 59 Year
  Sex: Male

DRUGS (1)
  1. COPAXONE [Suspect]
     Active Substance: GLATIRAMER ACETATE
     Indication: MULTIPLE SCLEROSIS
     Route: 058
     Dates: start: 201504

REACTIONS (6)
  - Vitamin D deficiency [Recovered/Resolved]
  - Blood creatine phosphokinase increased [Recovered/Resolved]
  - Secondary progressive multiple sclerosis [Unknown]
  - Psychotic disorder [Unknown]
  - Hemiplegia [Recovering/Resolving]
  - Tension headache [Recovered/Resolved]

NARRATIVE: CASE EVENT DATE: 20160904
